FAERS Safety Report 16024124 (Version 1)
Quarter: 2019Q1

REPORT INFORMATION
  Report Type: Spontaneous
  Country: US (occurrence: US)
  Receive Date: 20190301
  Receipt Date: 20190301
  Transmission Date: 20190418
  Serious: No
  Sender: FDA-Public Use
  Company Number: US-IMPAX LABORATORIES, LLC-2018-IPXL-00504

PATIENT
  Age: 17 Year
  Sex: Female

DRUGS (2)
  1. EMVERM [Suspect]
     Active Substance: MEBENDAZOLE
     Indication: CESTODE INFECTION
     Dosage: 100 MG, SINGLE
     Route: 048
     Dates: start: 20180205
  2. EMVERM [Suspect]
     Active Substance: MEBENDAZOLE
     Indication: PRODUCT USE IN UNAPPROVED INDICATION

REACTIONS (1)
  - Drug ineffective for unapproved indication [Unknown]

NARRATIVE: CASE EVENT DATE: 20180211
